FAERS Safety Report 20561776 (Version 1)
Quarter: 2022Q1

REPORT INFORMATION
  Report Type: Spontaneous
  Country: US (occurrence: None)
  Receive Date: 20220306
  Receipt Date: 20220306
  Transmission Date: 20220424
  Serious: Yes (Other)
  Sender: FDA-Public Use
  Company Number: None

PATIENT
  Age: 75 Year
  Sex: Female
  Weight: 54 kg

DRUGS (15)
  1. REPATHA [Suspect]
     Active Substance: EVOLOCUMAB
     Indication: Blood cholesterol increased
     Dosage: OTHER QUANTITY : 2 INJECTION(S);?OTHER FREQUENCY : EVERY 2 WEEKS;?
     Route: 030
     Dates: start: 20210417, end: 20211015
  2. LEVITHYROXIN [Concomitant]
  3. DILTIAZEM [Concomitant]
  4. OLMESARTAN [Concomitant]
     Active Substance: OLMESARTAN
  5. ESTRADIOL [Concomitant]
  6. OMEGA-3ACID ESTERS [Concomitant]
  7. LORAZEPAM [Concomitant]
     Active Substance: LORAZEPAM
  8. ASPIRIN [Concomitant]
     Active Substance: ASPIRIN
  9. VITAMIN B12 [Concomitant]
     Active Substance: CYANOCOBALAMIN
  10. VITAMIN D [Concomitant]
     Active Substance: VITAMIN D NOS
  11. MAGNESIUM CITRATE [Concomitant]
  12. CALCIUM [Concomitant]
  13. VITAMIN C [Concomitant]
     Active Substance: ASCORBIC ACID
  14. ZINC [Concomitant]
  15. MULTI VITAMIN [Concomitant]

REACTIONS (5)
  - Muscle atrophy [None]
  - Back pain [None]
  - Fatigue [None]
  - Cognitive disorder [None]
  - Renal disorder [None]

NARRATIVE: CASE EVENT DATE: 20210601
